FAERS Safety Report 6486803-0 (Version None)
Quarter: 2009Q4

REPORT INFORMATION
  Report Type: 
  Country: None (occurrence: None)
  Receive Date: 20091209
  Receipt Date: 20091209
  Transmission Date: 20100525
  Serious: Yes (Hospitalization)
  Sender: FDA-Public Use
  Company Number: None

PATIENT
  Age: 61 Year
  Sex: Male

DRUGS (8)
  1. COUMADIN [Suspect]
     Indication: ATRIAL FIBRILLATION
     Dosage: 5 MG DAILY PO CHRONIC
     Route: 048
  2. ASPIRIN [Suspect]
     Indication: ATRIAL FIBRILLATION
     Dosage: 162 MG DAILY PO CHRONIC
     Route: 048
  3. LIPITOR [Concomitant]
  4. LISINOPRIL [Concomitant]
  5. RANITIDINE [Concomitant]
  6. COREG [Concomitant]
  7. LASIX [Concomitant]
  8. FISH OIL [Concomitant]

REACTIONS (7)
  - BLOOD CHLORIDE DECREASED [None]
  - HYPONATRAEMIA [None]
  - HYPOVOLAEMIA [None]
  - INTERNATIONAL NORMALISED RATIO INCREASED [None]
  - OEDEMA PERIPHERAL [None]
  - PAIN IN EXTREMITY [None]
  - SYNOVIAL RUPTURE [None]
